FAERS Safety Report 14934472 (Version 3)
Quarter: 2018Q4

REPORT INFORMATION
  Report Type: Spontaneous
  Country: DE (occurrence: DE)
  Receive Date: 20180524
  Receipt Date: 20181005
  Transmission Date: 20190204
  Serious: Yes (Hospitalization, Other)
  Sender: FDA-Public Use
  Company Number: DE-DRREDDYS-GER/GER/18/0099227

PATIENT
  Age: 15 Year
  Sex: Male
  Weight: 106 kg

DRUGS (16)
  1. OMEPRAZOLE. [Concomitant]
     Active Substance: OMEPRAZOLE
     Indication: STILL^S DISEASE
     Route: 048
     Dates: start: 20141217
  2. ARCOXIA [Concomitant]
     Active Substance: ETORICOXIB
     Indication: STILL^S DISEASE
     Dosage: DAILY DOSE: 90 MG MILLGRAM(S) EVERY DAYS
     Route: 048
  3. PERAMPANEL [Concomitant]
     Active Substance: PERAMPANEL
     Indication: STILL^S DISEASE
     Route: 048
     Dates: start: 20160303
  4. PANTOPRAZOLE [Suspect]
     Active Substance: PANTOPRAZOLE
     Indication: STILL^S DISEASE
     Route: 065
     Dates: start: 20141204
  5. PANTOPRAZOLE [Suspect]
     Active Substance: PANTOPRAZOLE
     Dates: start: 20150401
  6. ROACTEMRA [Suspect]
     Active Substance: TOCILIZUMAB
     Indication: STILL^S DISEASE
     Dosage: DAILY DOSE: 640 MG MILLGRAM(S) EVERY 2 WEEKS
     Route: 042
     Dates: start: 20150428
  7. ETORICOXIB. [Concomitant]
     Active Substance: ETORICOXIB
     Indication: STILL^S DISEASE
     Route: 048
     Dates: start: 20160403
  8. FOLSAURE [Concomitant]
     Active Substance: FOLIC ACID
     Indication: STILL^S DISEASE
     Route: 048
     Dates: start: 20141204
  9. DICLOFENAC [Suspect]
     Active Substance: DICLOFENAC
     Indication: STILL^S DISEASE
     Dosage: DAILY DOSE: 100 MG MILLGRAM(S) EVERY DAYS
     Route: 048
     Dates: start: 20141217, end: 20150113
  10. FOLIC ACID. [Concomitant]
     Active Substance: FOLIC ACID
     Indication: STILL^S DISEASE
     Route: 048
     Dates: start: 20141204
  11. OXCARBAZEPIN [Concomitant]
     Active Substance: OXCARBAZEPINE
     Indication: EPILEPSY
     Route: 048
     Dates: start: 20160908
  12. ROACTEMRA [Suspect]
     Active Substance: TOCILIZUMAB
     Dosage: DAILY DOSE: 640 MG MILLGRAM(S) EVERY 4 WEEKS
     Route: 042
     Dates: start: 20141217
  13. METHOTREXAT [Suspect]
     Active Substance: METHOTREXATE
     Indication: STILL^S DISEASE
     Dosage: DAILY DOSE: 20 MG MILLGRAM(S) EVERY WEEKS
     Route: 048
     Dates: start: 20141204
  14. PREDNISON [Suspect]
     Active Substance: PREDNISONE
     Indication: STILL^S DISEASE
     Route: 065
     Dates: start: 20150428
  15. OXCARBAZEPIN [Concomitant]
     Active Substance: OXCARBAZEPINE
     Dates: start: 20160915
  16. TOPIRAMAT [Concomitant]
     Active Substance: TOPIRAMATE
     Indication: EPILEPSY
     Dosage: DAILY DOSE: 200 MG MILLGRAM(S) EVERY DAYS
     Route: 048

REACTIONS (8)
  - Epilepsy [Recovered/Resolved]
  - Sinusitis [Recovered/Resolved]
  - Otitis media [Recovered/Resolved]
  - Fall [Unknown]
  - Pneumonia aspiration [Recovered/Resolved]
  - Craniocerebral injury [Unknown]
  - Hand fracture [Unknown]
  - Seizure [Recovered/Resolved]

NARRATIVE: CASE EVENT DATE: 20150430
